FAERS Safety Report 6561216-1 (Version None)
Quarter: 2010Q1

REPORT INFORMATION
  Report Type: 
  Country: None (occurrence: None)
  Receive Date: 20100130
  Receipt Date: 20091007
  Transmission Date: 20100710
  Serious: No
  Sender: FDA-Public Use
  Company Number: US-ABBOTT-09P-163-0602090-00

PATIENT
  Sex: Male
  Weight: 64 kg

DRUGS (4)
  1. HUMIRA [Suspect]
     Indication: PSORIASIS
     Dates: start: 20090501, end: 20090501
  2. HUMIRA [Suspect]
     Dates: start: 20090921, end: 20090921
  3. HUMIRA [Suspect]
  4. HUMIRA [Suspect]

REACTIONS (2)
  - DIZZINESS [None]
  - RESTLESS LEGS SYNDROME [None]
